FAERS Safety Report 7753047 (Version 2)
Quarter: 2013Q3

REPORT INFORMATION
  Report Type: Spontaneous
  Country: US (occurrence: US)
  Receive Date: 20110110
  Receipt Date: 20130821
  Transmission Date: 20140515
  Serious: No
  Sender: FDA-Public Use
  Company Number: US-BIOGENIDEC-2011BI000504

PATIENT
  Age: 47 Year
  Sex: Female

DRUGS (2)
  1. TYSABRI [Suspect]
     Indication: MULTIPLE SCLEROSIS
     Route: 042
     Dates: start: 20100615, end: 20130303
  2. TYSABRI [Suspect]
     Indication: MULTIPLE SCLEROSIS
     Route: 042
     Dates: start: 20130425

REACTIONS (8)
  - Bone contusion [Unknown]
  - Loss of control of legs [Unknown]
  - Fall [Recovered/Resolved]
  - Musculoskeletal stiffness [Not Recovered/Not Resolved]
  - Abasia [Not Recovered/Not Resolved]
  - Nail infection [Not Recovered/Not Resolved]
  - Nail injury [Recovered/Resolved]
  - Arthralgia [Not Recovered/Not Resolved]
